FAERS Safety Report 4557819-6 (Version None)
Quarter: 2005Q1

REPORT INFORMATION
  Report Type: 
  Country: None (occurrence: None)
  Receive Date: 20050118
  Receipt Date: 20050112
  Transmission Date: 20050727
  Serious: Yes (Death)
  Sender: FDA-Public Use
  Company Number: TCI2004A04755

PATIENT
  Age: 91 Year
  Sex: Male

DRUGS (1)
  1. LANSOPRAZOLE [Suspect]
     Indication: DUODENAL ULCER
     Dosage: 30 MG (30 MG 1 D)
     Route: 048
     Dates: start: 20041101, end: 20041201

REACTIONS (4)
  - ANAEMIA [None]
  - BONE MARROW DEPRESSION [None]
  - CEREBROVASCULAR ACCIDENT [None]
  - PNEUMONIA [None]
